FAERS Safety Report 9297939 (Version 1)
Quarter: 2013Q2

REPORT INFORMATION
  Report Type: Spontaneous
  Country: CH (occurrence: CH)
  Receive Date: 20130520
  Receipt Date: 20130520
  Transmission Date: 20140414
  Serious: Yes (Hospitalization)
  Sender: FDA-Public Use
  Company Number: CH-ROCHE-1224403

PATIENT
  Age: 63 Year
  Sex: Female
  Weight: 60 kg

DRUGS (8)
  1. ROCEPHIN [Suspect]
     Indication: PRODUCT USED FOR UNKNOWN INDICATION
     Route: 040
     Dates: start: 20130117, end: 20130121
  2. ROCEPHIN [Suspect]
     Route: 040
     Dates: start: 20130214, end: 20130303
  3. TIENAM IV [Suspect]
     Indication: PRODUCT USED FOR UNKNOWN INDICATION
     Route: 040
  4. KEPPRA [Suspect]
     Indication: PRODUCT USED FOR UNKNOWN INDICATION
     Route: 048
     Dates: start: 20130117, end: 20130303
  5. FLAGYL [Suspect]
     Indication: PRODUCT USED FOR UNKNOWN INDICATION
     Route: 065
     Dates: start: 20130214, end: 20130303
  6. LEVOFLOXACIN [Concomitant]
     Route: 042
  7. VANCOMYCIN [Concomitant]
     Route: 065
     Dates: start: 20130117
  8. MERONEM [Concomitant]
     Route: 065
     Dates: start: 20130121

REACTIONS (7)
  - Drug reaction with eosinophilia and systemic symptoms [Recovered/Resolved]
  - Leukopenia [Recovered/Resolved]
  - Coma hepatic [Recovering/Resolving]
  - Eosinophilia [Recovered/Resolved]
  - Thrombocytopenia [Recovered/Resolved]
  - Drug hypersensitivity [None]
  - Cholecystitis [None]
